FAERS Safety Report 8719320 (Version 3)
Quarter: 2012Q4

REPORT INFORMATION
  Report Type: 
  Country: US (occurrence: US)
  Receive Date: 20120813
  Receipt Date: 20121017
  Transmission Date: 20130627
  Serious: Yes (Other)
  Sender: FDA-Public Use
  Company Number: US-PFIZER INC-2012138379

PATIENT
  Age: 47 Year
  Sex: Male

DRUGS (1)
  1. VIAGRA [Suspect]
     Indication: ERECTILE DYSFUNCTION
     Dosage: 100 mg, as needed

REACTIONS (5)
  - Heat stroke [Unknown]
  - Drug dispensing error [Unknown]
  - Cyanopsia [Not Recovered/Not Resolved]
  - Stress [Unknown]
  - Gastrooesophageal reflux disease [Unknown]
